FAERS Safety Report 7761814-3 (Version None)
Quarter: 2011Q3

REPORT INFORMATION
  Report Type: 
  Country: None (occurrence: None)
  Receive Date: 20110920
  Receipt Date: 20110908
  Transmission Date: 20111222
  Serious: Yes (Death, Life-Threatening, Hospitalization)
  Sender: FDA-Public Use
  Company Number: LB-SANOFI-AVENTIS-2011SA047326

PATIENT
  Age: 51 Year
  Sex: Female
  Weight: 72 kg

DRUGS (7)
  1. XELODA [Suspect]
     Route: 048
     Dates: start: 20110404, end: 20110623
  2. RANITIDINE [Concomitant]
  3. OXALIPLATIN [Suspect]
     Route: 041
     Dates: start: 20110404, end: 20110404
  4. AVASTIN [Suspect]
     Dates: start: 20110404, end: 20110517
  5. ZOFRAN [Concomitant]
  6. SOLU-MEDROL [Concomitant]
  7. OXALIPLATIN [Suspect]
     Route: 041
     Dates: start: 20110623, end: 20110623

REACTIONS (1)
  - HEPATIC FAILURE [None]
